FAERS Safety Report 14757529 (Version 12)
Quarter: 2021Q4

REPORT INFORMATION
  Report Type: Report from Study
  Country: DK (occurrence: DK)
  Receive Date: 20180413
  Receipt Date: 20211013
  Transmission Date: 20220303
  Serious: Yes (Other)
  Sender: FDA-Public Use
  Company Number: DK-SA-2018SA004520

PATIENT
  Age: 30 Year
  Sex: Female
  Weight: 73 kg

DRUGS (2)
  1. ALEMTUZUMAB [Suspect]
     Active Substance: ALEMTUZUMAB
     Indication: Relapsing multiple sclerosis
     Dosage: 12 MG,QD
     Route: 041
     Dates: start: 20171204, end: 20171208
  2. TECFIDERA [Concomitant]
     Active Substance: DIMETHYL FUMARATE
     Dosage: UNK UNK,UNK
     Route: 065
     Dates: start: 20151027, end: 20171203

REACTIONS (15)
  - Cytopenia [Recovered/Resolved]
  - Restlessness [Recovering/Resolving]
  - Dry mouth [Recovered/Resolved]
  - Arrhythmia [Recovered/Resolved]
  - Hyperthyroidism [Recovered/Resolved]
  - Rash [Recovered/Resolved]
  - Rash [Recovered/Resolved]
  - Dizziness [Recovered/Resolved]
  - Rash [Recovered/Resolved]
  - Rash [Recovered/Resolved]
  - Uhthoff^s phenomenon [Recovered/Resolved]
  - Insomnia [Recovered/Resolved]
  - Headache [Recovered/Resolved]
  - Urge incontinence [Not Recovered/Not Resolved]
  - Pregnancy [Recovered/Resolved]

NARRATIVE: CASE EVENT DATE: 20171204
